FAERS Safety Report 5008990-3 (Version None)
Quarter: 2006Q2

REPORT INFORMATION
  Report Type: 
  Country: None (occurrence: None)
  Receive Date: 20060519
  Receipt Date: 20060510
  Transmission Date: 20061013
  Serious: Yes (Hospitalization)
  Sender: FDA-Public Use
  Company Number: HQWYE250410MAY06

PATIENT
  Age: 17 Year
  Sex: Female

DRUGS (2)
  1. AVLOCARDYL (PROPRANOLOL HYDROCHLORIDE,  TABLET) [Suspect]
     Dosage: 120 MG 1X PER 1 DAY ORAL
     Route: 048
     Dates: start: 20050301, end: 20060329
  2. REMICADE [Suspect]
     Indication: CROHN'S DISEASE
     Dosage: INTRAVENOUS
     Route: 042
     Dates: start: 20030101, end: 20060315

REACTIONS (3)
  - ALOPECIA [None]
  - ECZEMA [None]
  - PSORIASIS [None]
